FAERS Safety Report 5130995-2 (Version None)
Quarter: 2006Q4

REPORT INFORMATION
  Report Type: 
  Country: None (occurrence: None)
  Receive Date: 20061019
  Receipt Date: 20060825
  Transmission Date: 20070319
  Serious: Yes (Death)
  Sender: FDA-Public Use
  Company Number: JP-ALLERGAN-0604280US

PATIENT
  Sex: Female

DRUGS (8)
  1. BOTOX [Suspect]
     Indication: TORTICOLLIS
     Dosage: 100 UNITS, SINGLE
     Route: 030
     Dates: start: 20060712, end: 20060712
  2. PHENOBARBITAL TAB [Concomitant]
     Dates: start: 20050519
  3. ZONISAMIDE [Concomitant]
     Dates: start: 20050519
  4. TRICHLORETHYL PHOSPHATE SODIUM [Concomitant]
     Dates: start: 20050519
  5. THEOPHYLLINE [Concomitant]
     Dates: start: 20050519
  6. CARBOCISTEINE [Concomitant]
     Dates: start: 20050519
  7. PRANLUKAST [Concomitant]
     Dates: start: 20050519
  8. LANSOPRAZOLE [Concomitant]
     Dates: start: 20050519

REACTIONS (2)
  - ACUTE RESPIRATORY FAILURE [None]
  - CARDIO-RESPIRATORY ARREST [None]
